FAERS Safety Report 9894459 (Version 1)
Quarter: 2014Q1

REPORT INFORMATION
  Report Type: Spontaneous
  Country: US (occurrence: US)
  Receive Date: 20140213
  Receipt Date: 20140213
  Transmission Date: 20141002
  Serious: Yes (Other)
  Sender: FDA-Public Use
  Company Number: US-PFIZER INC-2014039511

PATIENT
  Age: 89 Year
  Sex: Male
  Weight: 58.96 kg

DRUGS (3)
  1. LYRICA [Suspect]
     Indication: NEUROPATHY PERIPHERAL
     Dosage: UNK
  2. LYRICA [Suspect]
     Dosage: 25 MG, 3X/DAY
     Dates: start: 201401
  3. SYNTHROID [Concomitant]
     Dosage: 0.88 UG, 1X/DAY

REACTIONS (1)
  - Ulcer haemorrhage [Unknown]
